FAERS Safety Report 24125692 (Version 1)
Quarter: 2024Q3

REPORT INFORMATION
  Report Type: Spontaneous
  Country: US (occurrence: US)
  Receive Date: 20240723
  Receipt Date: 20240723
  Transmission Date: 20241016
  Serious: Yes (Other)
  Sender: ACCORD
  Company Number: US-MLMSERVICE-20240709-PI122803-00255-4

PATIENT
  Age: 28 Year
  Sex: Male

DRUGS (18)
  1. CISPLATIN [Suspect]
     Active Substance: CISPLATIN
     Indication: Testicular cancer metastatic
     Dosage: FOUR CYCLES
  2. PACLITAXEL [Suspect]
     Active Substance: PACLITAXEL
     Indication: Metastases to lymph nodes
     Dosage: FOUR CYCLES
  3. IFOSFAMIDE [Suspect]
     Active Substance: IFOSFAMIDE
     Indication: Metastases to retroperitoneum
     Dosage: FOUR CYCLES
  4. IFOSFAMIDE [Suspect]
     Active Substance: IFOSFAMIDE
     Indication: Metastases to lung
     Dosage: FOUR CYCLES
  5. CISPLATIN [Suspect]
     Active Substance: CISPLATIN
     Indication: Metastases to retroperitoneum
     Dosage: FOUR CYCLES
  6. PACLITAXEL [Suspect]
     Active Substance: PACLITAXEL
     Indication: Testicular cancer metastatic
     Dosage: FOUR CYCLES
  7. PACLITAXEL [Suspect]
     Active Substance: PACLITAXEL
     Indication: Testis cancer recurrent
     Dosage: FOUR CYCLES
  8. PACLITAXEL [Suspect]
     Active Substance: PACLITAXEL
     Indication: Metastases to retroperitoneum
     Dosage: FOUR CYCLES
  9. PACLITAXEL [Suspect]
     Active Substance: PACLITAXEL
     Indication: Metastases to lung
     Dosage: FOUR CYCLES
  10. CISPLATIN [Suspect]
     Active Substance: CISPLATIN
     Indication: Testis cancer recurrent
     Dosage: FOUR CYCLES
  11. CISPLATIN [Suspect]
     Active Substance: CISPLATIN
     Indication: Testis cancer
     Dosage: FOUR CYCLES
  12. CISPLATIN [Suspect]
     Active Substance: CISPLATIN
     Indication: Metastases to lung
     Dosage: FOUR CYCLES
  13. CISPLATIN [Suspect]
     Active Substance: CISPLATIN
     Indication: Metastases to lymph nodes
     Dosage: FOUR CYCLES
  14. IFOSFAMIDE [Suspect]
     Active Substance: IFOSFAMIDE
     Indication: Testis cancer recurrent
     Dosage: FOUR CYCLES
  15. IFOSFAMIDE [Suspect]
     Active Substance: IFOSFAMIDE
     Indication: Metastases to lymph nodes
     Dosage: FOUR CYCLES
  16. IFOSFAMIDE [Suspect]
     Active Substance: IFOSFAMIDE
     Indication: Testis cancer
     Dosage: FOUR CYCLES
  17. IFOSFAMIDE [Suspect]
     Active Substance: IFOSFAMIDE
     Indication: Testicular cancer metastatic
     Dosage: FOUR CYCLES
  18. PACLITAXEL [Suspect]
     Active Substance: PACLITAXEL
     Indication: Testis cancer
     Dosage: FOUR CYCLES

REACTIONS (2)
  - Anaemia [Unknown]
  - Off label use [Unknown]
